FAERS Safety Report 10309211 (Version 3)
Quarter: 2014Q3

REPORT INFORMATION
  Report Type: Spontaneous
  Country: US (occurrence: None)
  Receive Date: 20140714
  Receipt Date: 20140922
  Transmission Date: 20150326
  Serious: Yes (Hospitalization, Other)
  Sender: FDA-Public Use
  Company Number: 2014US003419

PATIENT
  Age: 74 Year
  Sex: Male
  Weight: 92 kg

DRUGS (11)
  1. ACYCLOVIR. [Concomitant]
     Active Substance: ACYCLOVIR
  2. NORVASC [Concomitant]
     Active Substance: AMLODIPINE BESYLATE
  3. CAREVEDILOL [Concomitant]
  4. POTASSIUM CHLORIDE (POTASSIUM CHLORIDE) [Concomitant]
     Active Substance: POTASSIUM CHLORIDE
  5. CHOLECALCIFEROL [Concomitant]
     Active Substance: CHOLECALCIFEROL
  6. ETOPOSIDE (ETOPOSIDE PHOSPHATE) [Concomitant]
     Active Substance: ETOPOSIDE
  7. ZOLPIDEM [Concomitant]
     Active Substance: ZOLPIDEM\ZOLPIDEM TARTRATE
  8. CYTOXAN [Concomitant]
     Active Substance: CYCLOPHOSPHAMIDE
  9. ICLUSIG [Suspect]
     Active Substance: PONATINIB
     Indication: ACUTE LYMPHOCYTIC LEUKAEMIA
     Route: 048
     Dates: start: 20140613, end: 20140619
  10. LIPITOR [Concomitant]
     Active Substance: ATORVASTATIN CALCIUM
  11. ASPIRIN (ACETYLSALICYLIC ACID) [Concomitant]
     Active Substance: ASPIRIN

REACTIONS (16)
  - Congestive cardiomyopathy [None]
  - Pancytopenia [None]
  - Blood bilirubin increased [None]
  - Insomnia [None]
  - Decreased appetite [None]
  - Hypotension [None]
  - Weight decreased [None]
  - Nausea [None]
  - Alanine aminotransferase increased [None]
  - Disease progression [None]
  - Atrial fibrillation [None]
  - Heart rate decreased [None]
  - Cardiac failure congestive [None]
  - Feeling cold [None]
  - Blood count abnormal [None]
  - Aspartate aminotransferase increased [None]

NARRATIVE: CASE EVENT DATE: 2014
